FAERS Safety Report 25098961 (Version 3)
Quarter: 2025Q2

REPORT INFORMATION
  Report Type: Spontaneous
  Country: US (occurrence: US)
  Receive Date: 20250320
  Receipt Date: 20250414
  Transmission Date: 20250717
  Serious: No
  Sender: ABBVIE
  Company Number: US-ABBVIE-6181350

PATIENT
  Age: 66 Year
  Sex: Female

DRUGS (4)
  1. ALPHAGAN P [Suspect]
     Active Substance: BRIMONIDINE TARTRATE
     Indication: Glaucoma
     Route: 047
     Dates: start: 202503
  2. ALPHAGAN P [Suspect]
     Active Substance: BRIMONIDINE TARTRATE
     Indication: Intraocular pressure test
     Route: 047
     Dates: start: 20241105
  3. ALPHAGAN P [Suspect]
     Active Substance: BRIMONIDINE TARTRATE
     Route: 047
     Dates: start: 202411
  4. LUMIGAN [Suspect]
     Active Substance: BIMATOPROST
     Indication: Intraocular pressure test
     Route: 047

REACTIONS (12)
  - Dry eye [Not Recovered/Not Resolved]
  - Ocular discomfort [Unknown]
  - Vitreous floaters [Not Recovered/Not Resolved]
  - Eye inflammation [Recovered/Resolved]
  - Eye pain [Unknown]
  - Visual impairment [Not Recovered/Not Resolved]
  - Halo vision [Unknown]
  - Skin irritation [Unknown]
  - Sleep disorder [Unknown]
  - Eyelid margin crusting [Unknown]
  - Intraocular pressure increased [Unknown]
  - Impaired quality of life [Unknown]

NARRATIVE: CASE EVENT DATE: 20240101
